FAERS Safety Report 5872818-X (Version None)
Quarter: 2008Q3

REPORT INFORMATION
  Report Type: 
  Country: None (occurrence: None)
  Receive Date: 20080905
  Receipt Date: 20080902
  Transmission Date: 20090109
  Serious: Yes (Death)
  Sender: FDA-Public Use
  Company Number: HU-ABBOTT-08P-076-0473965-00

PATIENT
  Sex: Male
  Weight: 82 kg

DRUGS (1)
  1. LUCRIN PDS DEPOT 11.25 MG [Suspect]
     Indication: PROSTATE CANCER
     Route: 058
     Dates: start: 20050311

REACTIONS (1)
  - DEHYDRATION [None]
